FAERS Safety Report 4668773-0 (Version None)
Quarter: 2005Q2

REPORT INFORMATION
  Report Type: 
  Country: None (occurrence: None)
  Receive Date: 20050523
  Receipt Date: 20041202
  Transmission Date: 20051028
  Serious: Yes (Other)
  Sender: FDA-Public Use
  Company Number: PHNU2004DE04065

PATIENT
  Age: 58 Year
  Sex: Male
  Weight: 77 kg

DRUGS (4)
  1. VINBLASTINE SULFATE [Concomitant]
     Indication: RENAL CELL CARCINOMA STAGE UNSPECIFIED
     Route: 065
     Dates: start: 20030918, end: 20031218
  2. INTRON A [Concomitant]
     Indication: RENAL CELL CARCINOMA STAGE UNSPECIFIED
     Dosage: UNK, TIW
     Dates: start: 20030918
  3. RADIOTHERAPY [Concomitant]
     Indication: METASTASES TO BONE
     Route: 065
     Dates: start: 20030313, end: 20030417
  4. ZOMETA [Suspect]
     Indication: METASTASES TO BONE
     Dosage: 4 MG, QMO
     Dates: start: 20030502

REACTIONS (8)
  - ASEPTIC NECROSIS BONE [None]
  - EXCESSIVE GRANULATION TISSUE [None]
  - MALIGNANT NEOPLASM PROGRESSION [None]
  - ORAL SURGERY [None]
  - OSTEOMYELITIS [None]
  - PRIMARY SEQUESTRUM [None]
  - PURULENT DISCHARGE [None]
  - TOOTH EXTRACTION [None]
